FAERS Safety Report 20487575 (Version 8)
Quarter: 2022Q2

REPORT INFORMATION
  Report Type: Spontaneous
  Country: US (occurrence: US)
  Receive Date: 20220218
  Receipt Date: 20220413
  Transmission Date: 20220721
  Serious: Yes (Hospitalization)
  Sender: FDA-Public Use
  Company Number: US-UNITED THERAPEUTICS-UNT-2022-003649

PATIENT
  Age: 71 Year
  Sex: Female
  Weight: 63.492 kg

DRUGS (5)
  1. TYVASO [Suspect]
     Active Substance: TREPROSTINIL
     Indication: Pulmonary arterial hypertension
     Dosage: UNK
     Dates: start: 20220204
  2. TYVASO [Suspect]
     Active Substance: TREPROSTINIL
     Dosage: 18-72 ?G, QID
     Dates: start: 202202
  3. TYVASO [Suspect]
     Active Substance: TREPROSTINIL
     Dosage: UNK
  4. TYVASO [Suspect]
     Active Substance: TREPROSTINIL
     Dosage: 30 ?G, QID
  5. TYVASO [Suspect]
     Active Substance: TREPROSTINIL
     Dosage: UNK

REACTIONS (8)
  - Road traffic accident [Recovered/Resolved with Sequelae]
  - Pain [Unknown]
  - Cough [Unknown]
  - Dizziness [Unknown]
  - Chest discomfort [Not Recovered/Not Resolved]
  - Arthritis [Unknown]
  - Device connection issue [Unknown]
  - Product design issue [Unknown]

NARRATIVE: CASE EVENT DATE: 20220201
